FAERS Safety Report 14570405 (Version 2)
Quarter: 2018Q3

REPORT INFORMATION
  Report Type: Spontaneous
  Country: KR (occurrence: KR)
  Receive Date: 20180226
  Receipt Date: 20180711
  Transmission Date: 20181010
  Serious: Yes (Life-Threatening, Other)
  Sender: FDA-Public Use
  Company Number: KR-CONCORDIA PHARMACEUTICALS INC.-E2B_00009974

PATIENT
  Age: 64 Year
  Sex: Female

DRUGS (4)
  1. PREDNISOLONE. [Suspect]
     Active Substance: PREDNISOLONE
     Indication: NODAL MARGINAL ZONE B-CELL LYMPHOMA
     Dosage: EVERY 3 WEEKS; CYCLICAL; R?CVP
  2. CYCLOPHOSPHAMIDE. [Suspect]
     Active Substance: CYCLOPHOSPHAMIDE
     Indication: NODAL MARGINAL ZONE B-CELL LYMPHOMA
     Dosage: EVERY 3 WEEKS; CYCLICAL;  R?CVP
  3. VINCRISTINE [Suspect]
     Active Substance: VINCRISTINE
     Indication: NODAL MARGINAL ZONE B-CELL LYMPHOMA
     Dosage: EVERY 3 WEEKS; CYCLICAL; R?CVP
  4. RITUXIMAB. [Suspect]
     Active Substance: RITUXIMAB
     Indication: NODAL MARGINAL ZONE B-CELL LYMPHOMA
     Dosage: EVERY 3 WEEKS; CYCLICAL;  R?CVP

REACTIONS (4)
  - Vomiting [Unknown]
  - Nausea [Unknown]
  - Neutropenia [Unknown]
  - Asthenia [Unknown]
